FAERS Safety Report 5223296-5 (Version None)
Quarter: 2007Q1

REPORT INFORMATION
  Report Type: 
  Country: None (occurrence: None)
  Receive Date: 20070125
  Receipt Date: 20070111
  Transmission Date: 20070707
  Serious: Yes (Hospitalization, Other)
  Sender: FDA-Public Use
  Company Number: VNL_0345_2006

PATIENT
  Age: 66 Year
  Sex: Male

DRUGS (5)
  1. APO-GO [Suspect]
     Indication: PARKINSON'S DISEASE
     Dosage: DF INFUSION SC
     Route: 058
     Dates: start: 20061101, end: 20061201
  2. MADOPAR 250 [Concomitant]
  3. MADOPAR CR [Concomitant]
  4. RASAGILINE [Concomitant]
  5. ROPINIROLE HCL [Concomitant]

REACTIONS (4)
  - CONFUSIONAL STATE [None]
  - HALLUCINATION [None]
  - PARANOIA [None]
  - PSYCHOTIC DISORDER [None]
